FAERS Safety Report 5145933-6 (Version None)
Quarter: 2006Q4

REPORT INFORMATION
  Report Type: 
  Country: None (occurrence: None)
  Receive Date: 20061108
  Receipt Date: 20060913
  Transmission Date: 20070319
  Serious: Yes (Other)
  Sender: FDA-Public Use
  Company Number: 2006UW17980

PATIENT
  Age: 73 Year
  Sex: Female

DRUGS (4)
  1. SEROQUEL [Suspect]
     Route: 048
     Dates: start: 20041001, end: 20050901
  2. WELLBUTRIN [Suspect]
  3. NORVASC [Concomitant]
  4. TOPROL-XL [Concomitant]
     Route: 048

REACTIONS (1)
  - MYELODYSPLASTIC SYNDROME [None]
